FAERS Safety Report 9773150 (Version 2)
Quarter: 2013Q4

REPORT INFORMATION
  Report Type: Spontaneous
  Country: US (occurrence: US)
  Receive Date: 20131219
  Receipt Date: 20131219
  Transmission Date: 20140711
  Serious: Yes (Disabling)
  Sender: FDA-Public Use
  Company Number: US-BRISTOL-MYERS SQUIBB COMPANY-19828367

PATIENT
  Age: 17 Year
  Sex: Male

DRUGS (3)
  1. ABILIFY [Suspect]
     Indication: DEPRESSION
     Dosage: DOSE INCREASED TO 15 MG LATER REDUCED TO 5 MG
     Route: 048
     Dates: start: 201306
  2. LEXAPRO [Suspect]
     Route: 048
  3. ADDERALL XR [Concomitant]
     Route: 048

REACTIONS (2)
  - Nystagmus [Unknown]
  - Vision blurred [Unknown]
